FAERS Safety Report 16017098 (Version 2)
Quarter: 2021Q2

REPORT INFORMATION
  Report Type: Report from Study
  Country: MX (occurrence: MX)
  Receive Date: 20190228
  Receipt Date: 20210524
  Transmission Date: 20210716
  Serious: Yes (Death)
  Sender: FDA-Public Use
  Company Number: MX-UCBSA-2019007337

PATIENT
  Sex: Female
  Weight: 76 kg

DRUGS (1)
  1. ROTIGOTINE [Suspect]
     Active Substance: ROTIGOTINE
     Indication: PRODUCT USED FOR UNKNOWN INDICATION
     Dosage: 8 MG

REACTIONS (2)
  - Cardiac failure [Fatal]
  - Urinary tract infection [Unknown]
